FAERS Safety Report 7394538-5 (Version None)
Quarter: 2011Q2

REPORT INFORMATION
  Report Type: 
  Country: None (occurrence: None)
  Receive Date: 20110405
  Receipt Date: 20110331
  Transmission Date: 20111010
  Serious: Yes (Death, Hospitalization)
  Sender: FDA-Public Use
  Company Number: PHHY2010CA14897

PATIENT
  Sex: Male

DRUGS (1)
  1. SANDOSTATIN LAR [Suspect]
     Indication: METASTATIC CARCINOID TUMOUR
     Dosage: 60 MG, EVERY 4 WEEKS
     Route: 030
     Dates: start: 20030329, end: 20110211

REACTIONS (9)
  - GALLBLADDER DISORDER [None]
  - GENERAL PHYSICAL HEALTH DETERIORATION [None]
  - CONFUSIONAL STATE [None]
  - NEOPLASM MALIGNANT [None]
  - DEMENTIA [None]
  - INTESTINAL OBSTRUCTION [None]
  - DEATH [None]
  - HEADACHE [None]
  - FALL [None]
